FAERS Safety Report 21793311 (Version 1)
Quarter: 2022Q4

REPORT INFORMATION
  Report Type: Spontaneous
  Country: US (occurrence: US)
  Receive Date: 20221229
  Receipt Date: 20221229
  Transmission Date: 20230113
  Serious: Yes (Other)
  Sender: FDA-Public Use
  Company Number: US-BRISTOL-MYERS SQUIBB COMPANY-2022-159566

PATIENT
  Age: 79 Year
  Sex: Male
  Weight: 95.708 kg

DRUGS (1)
  1. REVLIMID [Suspect]
     Active Substance: LENALIDOMIDE
     Indication: Plasma cell myeloma
     Dosage: 21D EVERY 28DAYS
     Route: 048

REACTIONS (2)
  - Panic attack [Unknown]
  - Myocardial infarction [Unknown]
